FAERS Safety Report 4928671-1 (Version None)
Quarter: 2006Q1

REPORT INFORMATION
  Report Type: 
  Country: None (occurrence: None)
  Receive Date: 20060227
  Receipt Date: 20060227
  Transmission Date: 20060701
  Serious: Yes (Death)
  Sender: FDA-Public Use
  Company Number: None

PATIENT
  Sex: Female
  Weight: 87.82 kg

DRUGS (3)
  1. CYCLOSPORINE [Suspect]
     Indication: ACUTE MYELOID LEUKAEMIA
     Dosage: 4732 MG
     Dates: start: 20060118, end: 20060120
  2. CYTARABINE [Suspect]
     Dosage: 249 MG
     Dates: start: 20060118, end: 20060120
  3. DAUNORUBICIN [Suspect]
     Dosage: 2576 MG
     Dates: start: 20060118, end: 20060124

REACTIONS (11)
  - ABDOMINAL PAIN [None]
  - BLOOD PRESSURE DECREASED [None]
  - CARDIAC ARREST [None]
  - CLOSTRIDIUM COLITIS [None]
  - FLUID OVERLOAD [None]
  - HYPOVENTILATION [None]
  - PANCYTOPENIA [None]
  - PULSE ABSENT [None]
  - PYREXIA [None]
  - RESPIRATORY DISTRESS [None]
  - TACHYCARDIA [None]
